FAERS Safety Report 11983109 (Version 3)
Quarter: 2016Q4

REPORT INFORMATION
  Report Type: Spontaneous
  Country: CH (occurrence: CH)
  Receive Date: 20160201
  Receipt Date: 20161013
  Transmission Date: 20170206
  Serious: Yes (Other)
  Sender: FDA-Public Use
  Company Number: CH-PFIZER INC-2016034295

PATIENT
  Age: 48 Year
  Sex: Female

DRUGS (1)
  1. PEGVISOMANT [Suspect]
     Active Substance: PEGVISOMANT
     Indication: ACROMEGALY
     Dosage: UNK
     Route: 058
     Dates: start: 2010

REACTIONS (2)
  - Pituitary tumour benign [Not Recovered/Not Resolved]
  - Disease progression [Not Recovered/Not Resolved]
